FAERS Safety Report 24186283 (Version 1)
Quarter: 2024Q3

REPORT INFORMATION
  Report Type: Report from Study
  Country: US (occurrence: None)
  Receive Date: 20240808
  Receipt Date: 20240808
  Transmission Date: 20241016
  Serious: Yes (Other)
  Sender: ASTRAZENECA
  Company Number: 2022A316059

PATIENT
  Weight: 72.6 kg

DRUGS (1)
  1. TAGRISSO [Suspect]
     Active Substance: OSIMERTINIB
     Indication: Non-small cell lung cancer
     Route: 048
     Dates: start: 20211201

REACTIONS (4)
  - Retinal tear [Unknown]
  - Stress fracture [Unknown]
  - Arthralgia [Unknown]
  - Joint injury [Unknown]
